FAERS Safety Report 10236390 (Version 2)
Quarter: 2014Q2

REPORT INFORMATION
  Report Type: Spontaneous
  Country: CZ (occurrence: CZ)
  Receive Date: 20140613
  Receipt Date: 20140613
  Transmission Date: 20141212
  Serious: Yes (Death)
  Sender: FDA-Public Use
  Company Number: PHHY2014CZ066843

PATIENT
  Sex: Female

DRUGS (1)
  1. TERBINAFINE [Suspect]
     Indication: FUNGAL INFECTION

REACTIONS (2)
  - Cardiac failure [Fatal]
  - Dyspepsia [Unknown]
